FAERS Safety Report 17030282 (Version 2)
Quarter: 2019Q4

REPORT INFORMATION
  Report Type: Spontaneous
  Country: JP (occurrence: JP)
  Receive Date: 20191114
  Receipt Date: 20191118
  Transmission Date: 20200122
  Serious: Yes (Hospitalization, Other)
  Sender: FDA-Public Use
  Company Number: JP-PFIZER INC-2019490311

PATIENT
  Age: 73 Year
  Sex: Female
  Weight: 64 kg

DRUGS (4)
  1. AMLODIPINE BESILATE [Suspect]
     Active Substance: AMLODIPINE BESYLATE
     Indication: HYPERTENSION
     Dosage: 5 MG, DAILY (1 TABLET AFTER BREAKFAST)
     Route: 048
  2. LIXIANA OD [Concomitant]
     Active Substance: EDOXABAN TOSYLATE
     Dosage: 60 MG, DAILY (1 TABLET AFTER BREAKFAST)
  3. EXJADE [Concomitant]
     Active Substance: DEFERASIROX
     Dosage: 125 MG, DAILY (3 TABLETS BEFORE BEDTIME)
  4. EXJADE [Concomitant]
     Active Substance: DEFERASIROX
     Dosage: 500 MG, DAILY (1 TABLET BEFORE BEDTIME)

REACTIONS (2)
  - Bronchopulmonary aspergillosis [Unknown]
  - Myelodysplastic syndrome [Unknown]
